FAERS Safety Report 6187578-5 (Version None)
Quarter: 2009Q2

REPORT INFORMATION
  Report Type: 
  Country: None (occurrence: None)
  Receive Date: 20090508
  Receipt Date: 20090424
  Transmission Date: 20091009
  Serious: Yes (Hospitalization)
  Sender: FDA-Public Use
  Company Number: DSM-2009-00546

PATIENT
  Age: 75 Year
  Sex: Male
  Weight: 95.4 kg

DRUGS (2)
  1. OLMESARTAN (OLMESARTAN) (TABLET) (OLMESARTAN) [Suspect]
     Indication: HYPERTENSION
     Dosage: 20 MG (20 MG, 1 IN 1 D), ORAL
     Route: 048
     Dates: start: 20080903, end: 20090205
  2. ACETYLSALICYLIC ACID SRT [Concomitant]

REACTIONS (3)
  - DISEASE RECURRENCE [None]
  - SEPSIS [None]
  - URINARY TRACT INFECTION [None]
